FAERS Safety Report 5242159-2 (Version None)
Quarter: 2007Q1

REPORT INFORMATION
  Report Type: 
  Country: None (occurrence: None)
  Receive Date: 20070213
  Receipt Date: 20070207
  Transmission Date: 20070707
  Serious: Yes (Other)
  Sender: FDA-Public Use
  Company Number: S07-USA-00600-01

PATIENT
  Age: 38 Year
  Sex: Female

DRUGS (4)
  1. LEXAPRO [Suspect]
     Indication: ANXIETY
     Dosage: 10 MG QD PO
     Route: 048
     Dates: start: 20070203, end: 20070204
  2. LEXAPRO [Suspect]
     Indication: DEPRESSION
     Dosage: 10 MG QD PO
     Route: 048
     Dates: start: 20070203, end: 20070204
  3. LEXAPRO [Suspect]
     Indication: ANXIETY
     Dosage: 5 MG QD PO
     Route: 048
     Dates: start: 20070201, end: 20070202
  4. LEXAPRO [Suspect]
     Indication: DEPRESSION
     Dosage: 5 MG QD PO
     Route: 048
     Dates: start: 20070201, end: 20070202

REACTIONS (7)
  - CONVULSION [None]
  - DIZZINESS [None]
  - LOSS OF CONSCIOUSNESS [None]
  - NAUSEA [None]
  - SOMNOLENCE [None]
  - URINARY INCONTINENCE [None]
  - VOMITING [None]
